FAERS Safety Report 9840766 (Version 1)
Quarter: 2013Q4

REPORT INFORMATION
  Report Type: Spontaneous
  Country: ES (occurrence: None)
  Receive Date: 20131211
  Receipt Date: 20131211
  Transmission Date: 20140711
  Serious: Yes (Hospitalization)
  Sender: FDA-Public Use
  Company Number: SPV1-2012-00725

PATIENT
  Age: 73 Year
  Sex: Male

DRUGS (1)
  1. FOSRENOL [Suspect]
     Indication: HYPOPHOSPHATAEMIA
     Dosage: UNK

REACTIONS (3)
  - Abdominal pain [None]
  - Diarrhoea [None]
  - Off label use [None]
